FAERS Safety Report 6062448-1 (Version None)
Quarter: 2009Q1

REPORT INFORMATION
  Report Type: 
  Country: None (occurrence: None)
  Receive Date: 20090202
  Receipt Date: 20090202
  Transmission Date: 20090719
  Serious: Yes (Hospitalization)
  Sender: FDA-Public Use
  Company Number: None

PATIENT
  Sex: Female
  Weight: 69.4 kg

DRUGS (5)
  1. ABRAXANE [Suspect]
     Indication: ADENOCARCINOMA PANCREAS
     Dosage: 134 MG D1, D8, 115/CYCLE 042
     Dates: start: 20081218, end: 20090122
  2. VANDETANIB [Suspect]
     Indication: ADENOCARCINOMA PANCREAS
     Dosage: 100 MG QD X 28 DAYS 47
     Dates: start: 20081218, end: 20090125
  3. LOVENOX [Concomitant]
  4. ASCORBIC ACID [Concomitant]
  5. OMEPRAZOLE [Concomitant]

REACTIONS (3)
  - CULTURE URINE POSITIVE [None]
  - NEUTROPENIA [None]
  - PYREXIA [None]
